FAERS Safety Report 6235547-9 (Version None)
Quarter: 2009Q2

REPORT INFORMATION
  Report Type: 
  Country: None (occurrence: None)
  Receive Date: 20090618
  Receipt Date: 20081209
  Transmission Date: 20091009
  Serious: No
  Sender: FDA-Public Use
  Company Number: US-ASTRAZENECA-2008UW27367

PATIENT
  Age: 69 Year
  Sex: Female

DRUGS (8)
  1. RHINOCORT [Suspect]
     Dosage: 32 MCG 120 METER SPRAY/UNIT
     Route: 045
  2. LASIX [Concomitant]
  3. PREVACID [Concomitant]
  4. LIPITOR [Concomitant]
  5. AMLODIPINE BESYLATE AND BENAZEPRIL HCL [Concomitant]
  6. SINGULAIR [Concomitant]
  7. POTASSIUM CHLORIDE [Concomitant]
  8. VITAMIN [Concomitant]

REACTIONS (3)
  - CANDIDIASIS [None]
  - DYSGEUSIA [None]
  - TONGUE DISCOLOURATION [None]
